FAERS Safety Report 20140025 (Version 8)
Quarter: 2025Q3

REPORT INFORMATION
  Report Type: Report from Study
  Country: CH (occurrence: CH)
  Receive Date: 20211202
  Receipt Date: 20250916
  Transmission Date: 20251020
  Serious: Yes (Hospitalization, Other)
  Sender: ABBVIE
  Company Number: CH-ABBVIE-20K-151-3598127-00

PATIENT
  Age: 52 Year
  Sex: Male
  Weight: 90 kg

DRUGS (39)
  1. SKYRIZI [Suspect]
     Active Substance: RISANKIZUMAB-RZAA
     Indication: Psoriasis
     Dosage: 150 MILLIGRAM
     Route: 058
     Dates: start: 20190906, end: 20191003
  2. SKYRIZI [Suspect]
     Active Substance: RISANKIZUMAB-RZAA
     Route: 058
     Dates: start: 20191003, end: 20200207
  3. SKYRIZI [Suspect]
     Active Substance: RISANKIZUMAB-RZAA
     Route: 058
     Dates: end: 202103
  4. SKYRIZI [Suspect]
     Active Substance: RISANKIZUMAB-RZAA
     Route: 058
  5. Elixan [Concomitant]
     Indication: Psoriasis
     Dosage: VASELINE 10%, ROA TOPICAL
     Dates: start: 201909
  6. TREMFYA [Suspect]
     Active Substance: GUSELKUMAB
     Indication: Psoriasis
     Route: 058
     Dates: start: 202003, end: 202103
  7. APREMILAST [Suspect]
     Active Substance: APREMILAST
     Indication: Product used for unknown indication
     Route: 065
     Dates: start: 20210915
  8. PANTOPRAZOLE SODIUM [Concomitant]
     Active Substance: PANTOPRAZOLE SODIUM
     Indication: Gastric ulcer
     Route: 048
     Dates: start: 20220203
  9. PANTOPRAZOLE SODIUM [Concomitant]
     Active Substance: PANTOPRAZOLE SODIUM
     Indication: Gastric ulcer
     Route: 048
     Dates: start: 20150101, end: 20220203
  10. DAIVOBET [Concomitant]
     Active Substance: BETAMETHASONE DIPROPIONATE\CALCIPOTRIENE
     Indication: Psoriasis
     Dates: start: 2012
  11. PREGABALIN [Concomitant]
     Active Substance: PREGABALIN
     Indication: Polyneuropathy
     Dosage: PREGABALINUM
     Route: 048
  12. ALDACTONE [Concomitant]
     Active Substance: SPIRONOLACTONE
     Indication: Oedema peripheral
     Route: 048
     Dates: start: 201506
  13. LYRICA [Concomitant]
     Active Substance: PREGABALIN
     Indication: Seizure
     Dosage: 1 MORNING, 1 EVENING
     Route: 048
     Dates: start: 20150101
  14. SALICYLIC ACID [Concomitant]
     Active Substance: SALICYLIC ACID
     Indication: Psoriasis
     Dosage: 1 APPLICATION, ROA TOPICAL
     Dates: start: 201909
  15. TORSEMIDE [Concomitant]
     Active Substance: TORSEMIDE
     Indication: Oedema peripheral
     Route: 048
     Dates: start: 2015, end: 2021
  16. Novalgin [Concomitant]
     Indication: Arthralgia
     Route: 048
     Dates: start: 20150101
  17. FERROUS GLYCINE SULFATE [Concomitant]
     Active Substance: FERROUS GLYCINE SULFATE
     Indication: Iron deficiency
     Route: 048
     Dates: start: 202201
  18. CHOLECALCIFEROL [Concomitant]
     Active Substance: CHOLECALCIFEROL
     Indication: Product used for unknown indication
     Dosage: 1 MORNING
     Route: 048
     Dates: start: 20180101, end: 201912
  19. RIBOFLAVIN [Concomitant]
     Active Substance: RIBOFLAVIN
     Indication: Product used for unknown indication
     Route: 048
     Dates: start: 20190514
  20. POTASSIUM [Concomitant]
     Active Substance: POTASSIUM
     Indication: Hypokalaemia
     Dosage: 1 MORNING
     Route: 048
     Dates: start: 20190514, end: 201912
  21. THIAMINE HYDROCHLORIDE [Concomitant]
     Active Substance: THIAMINE HYDROCHLORIDE
     Indication: Vitamin B1 deficiency
     Route: 048
     Dates: start: 2012
  22. METAMIZOL [Concomitant]
     Active Substance: METAMIZOLE SODIUM
     Indication: Pain
     Route: 048
     Dates: start: 20150101
  23. VASELINE PURE [Concomitant]
     Active Substance: PETROLATUM
     Indication: Psoriasis
     Dosage: 10 PERCENT, ROA TOPICAL
     Dates: start: 201909
  24. IBUPROFEN [Concomitant]
     Active Substance: IBUPROFEN
     Indication: Pain
     Route: 048
     Dates: start: 20190514
  25. AMLODIPINE BESYLATE [Concomitant]
     Active Substance: AMLODIPINE BESYLATE
     Indication: Hypertension
     Dosage: 1 MORNING
     Route: 048
     Dates: start: 20200212
  26. XIFAXAN [Concomitant]
     Active Substance: RIFAXIMIN
     Indication: Hepatic cirrhosis
     Route: 048
     Dates: start: 202201
  27. Optiderm [Concomitant]
     Indication: Psoriasis
     Dates: start: 20210823
  28. PYRIDOXINE HYDROCHLORIDE [Concomitant]
     Active Substance: PYRIDOXINE HYDROCHLORIDE
     Indication: Product used for unknown indication
  29. VITAMINS [Concomitant]
     Active Substance: VITAMINS
     Indication: Hypovitaminosis
     Dosage: 1 TABLET 2 TIMES A DAY
     Route: 048
     Dates: start: 2012
  30. Curatoderm [Concomitant]
     Indication: Psoriasis
     Dosage: ROA TOPICAL
     Dates: start: 20210823
  31. BETNOVATE [Concomitant]
     Active Substance: BETAMETHASONE
     Indication: Psoriasis
     Dates: start: 20210823
  32. Optiderm f [Concomitant]
     Indication: Psoriasis
     Dosage: 1 APPLICATION, ROA TOPICAL
     Dates: start: 20220127
  33. FOLIC ACID [Concomitant]
     Active Substance: FOLIC ACID
     Indication: Drug abuse
     Route: 048
     Dates: start: 202201
  34. CLOBETASOL [Concomitant]
     Active Substance: CLOBETASOL
     Indication: Psoriasis
     Dates: start: 2012
  35. OTEZLA [Concomitant]
     Active Substance: APREMILAST
     Indication: Psoriasis
     Route: 048
     Dates: start: 20210915
  36. ZONISAMIDE [Concomitant]
     Active Substance: ZONISAMIDE
     Indication: Partial seizures
     Route: 048
     Dates: start: 2020
  37. Vitamin D3 Ol [Concomitant]
     Indication: Hypovitaminosis
     Route: 048
     Dates: start: 20180101, end: 201912
  38. ENSTILAR [Concomitant]
     Active Substance: BETAMETHASONE DIPROPIONATE\CALCIPOTRIENE HYDRATE
     Indication: Psoriasis
     Dates: start: 20220127, end: 20220316
  39. POTASSIUM CHLORIDE [Concomitant]
     Active Substance: POTASSIUM CHLORIDE
     Indication: Hypokalaemia
     Route: 048
     Dates: start: 20190514, end: 201912

REACTIONS (11)
  - Therapeutic product effect incomplete [Recovered/Resolved with Sequelae]
  - Aspartate aminotransferase increased [Not Recovered/Not Resolved]
  - Alanine aminotransferase increased [Not Recovered/Not Resolved]
  - Blood alkaline phosphatase increased [Not Recovered/Not Resolved]
  - Gamma-glutamyltransferase increased [Not Recovered/Not Resolved]
  - Hepatic enzyme increased [Not Recovered/Not Resolved]
  - Diarrhoea [Not Recovered/Not Resolved]
  - Hypertension [Unknown]
  - Iron deficiency [Unknown]
  - Gastric ulcer [Unknown]
  - Partial seizures [Unknown]

NARRATIVE: CASE EVENT DATE: 20200101
